FAERS Safety Report 7524481-X (Version None)
Quarter: 2011Q2

REPORT INFORMATION
  Report Type: 
  Country: None (occurrence: None)
  Receive Date: 20110606
  Receipt Date: 20110513
  Transmission Date: 20111010
  Serious: Yes (Other)
  Sender: FDA-Public Use
  Company Number: US-BAYER-201037873NA

PATIENT
  Age: 24 Year
  Sex: Female
  Weight: 50 kg

DRUGS (10)
  1. CLARINEX [Concomitant]
     Dosage: UNK
  2. XANAX [Concomitant]
  3. AZITHROMYCIN [Concomitant]
     Dosage: 250 MG, UNK
  4. HYDROCODONE BITARTRATE AND ACETAMINOPHEN [Concomitant]
     Dosage: 5/500 MG
  5. LEXAPRO [Concomitant]
     Dosage: 10 MG, UNK
  6. YAZ [Suspect]
     Indication: PREMENSTRUAL SYNDROME
     Dosage: 1 TAB/DAY
     Route: 048
     Dates: start: 20080701, end: 20090301
  7. ADVIL [Concomitant]
     Dosage: 2 DAILY FOR YEARS
  8. SYNTHROID [Concomitant]
     Dosage: UNK
  9. NEXIUM [Concomitant]
     Dosage: 20 MG, UNK
  10. CARAFATE [Concomitant]
     Dosage: UNK

REACTIONS (5)
  - ABDOMINAL PAIN UPPER [None]
  - CHOLELITHIASIS [None]
  - ANXIETY [None]
  - MENTAL DISORDER [None]
  - CHOLECYSTITIS [None]
